FAERS Safety Report 18290150 (Version 1)
Quarter: 2020Q3

REPORT INFORMATION
  Report Type: Spontaneous
  Country: US (occurrence: US)
  Receive Date: 20200921
  Receipt Date: 20200921
  Transmission Date: 20201103
  Serious: Yes (Hospitalization, Other)
  Sender: FDA-Public Use
  Company Number: US-PURDUE-USA-2020-0166564

PATIENT
  Age: 33 Year

DRUGS (5)
  1. ROXICODONE [Suspect]
     Active Substance: OXYCODONE HYDROCHLORIDE
     Indication: PRODUCT USED FOR UNKNOWN INDICATION
     Dosage: UNK
     Route: 065
  2. OXYCODONE HYDROCHLORIDE (SIMILAR TO NDA 22?272) [Suspect]
     Active Substance: OXYCODONE HYDROCHLORIDE
     Indication: PRODUCT USED FOR UNKNOWN INDICATION
     Dosage: UNK
     Route: 048
  3. DILAUDID [Suspect]
     Active Substance: HYDROMORPHONE HYDROCHLORIDE
     Indication: PRODUCT USED FOR UNKNOWN INDICATION
     Dosage: UNK
     Route: 048
  4. HEROIN [Suspect]
     Active Substance: DIAMORPHINE
     Indication: PRODUCT USED FOR UNKNOWN INDICATION
     Dosage: UNK
     Route: 065
  5. DILAUDID [Suspect]
     Active Substance: HYDROMORPHONE HYDROCHLORIDE
     Indication: PRODUCT USED FOR UNKNOWN INDICATION
     Dosage: UNK
     Route: 065

REACTIONS (21)
  - Withdrawal syndrome [Unknown]
  - Decreased appetite [Unknown]
  - Erythema [Unknown]
  - Drug dependence [Unknown]
  - Anal sphincterotomy [Unknown]
  - Pain [Unknown]
  - Staphylococcal infection [Unknown]
  - Emotional distress [Unknown]
  - Peripheral swelling [Unknown]
  - Device related infection [Unknown]
  - Pain in extremity [Unknown]
  - Alopecia [Unknown]
  - Drug abuse [Unknown]
  - Anal fissure excision [Unknown]
  - Lymphadenopathy [Unknown]
  - Hepatitis C [Unknown]
  - Tonsillectomy [Unknown]
  - Colonoscopy [Unknown]
  - Endoscopy [Unknown]
  - Weight decreased [Unknown]
  - Muscle atrophy [Unknown]
